FAERS Safety Report 7463626-7 (Version None)
Quarter: 2011Q1

REPORT INFORMATION
  Report Type: 
  Country: None (occurrence: None)
  Receive Date: 20110302
  Receipt Date: 20100929
  Transmission Date: 20110831
  Serious: Yes (Death, Other)
  Sender: FDA-Public Use
  Company Number: 163-21880-10040379

PATIENT
  Sex: Male

DRUGS (6)
  1. REVLIMID [Suspect]
     Indication: MULTIPLE MYELOMA
     Dosage: 5 MG, 1 IN 2 D, PO, 5MG, 1 IN 1 D, PO, 5 MG, 1 IN 2 D, PO, 5-10MG, DAILY, PO
     Route: 048
     Dates: start: 20100201, end: 20100101
  2. REVLIMID [Suspect]
     Indication: MULTIPLE MYELOMA
     Dosage: 5 MG, 1 IN 2 D, PO, 5MG, 1 IN 1 D, PO, 5 MG, 1 IN 2 D, PO, 5-10MG, DAILY, PO
     Route: 048
     Dates: start: 20091201, end: 20090101
  3. REVLIMID [Suspect]
     Indication: MULTIPLE MYELOMA
     Dosage: 5 MG, 1 IN 2 D, PO, 5MG, 1 IN 1 D, PO, 5 MG, 1 IN 2 D, PO, 5-10MG, DAILY, PO
     Route: 048
     Dates: start: 20091001, end: 20090101
  4. REVLIMID [Suspect]
     Indication: MULTIPLE MYELOMA
     Dosage: 5 MG, 1 IN 2 D, PO, 5MG, 1 IN 1 D, PO, 5 MG, 1 IN 2 D, PO, 5-10MG, DAILY, PO
     Route: 048
     Dates: start: 20070416, end: 20070101
  5. CETUXIMAB (CETUXIMAB) [Concomitant]
  6. DEXAMETHASONE [Concomitant]

REACTIONS (2)
  - THROMBOCYTOPENIA [None]
  - HEAD AND NECK CANCER [None]
